FAERS Safety Report 21753043 (Version 1)
Quarter: 2022Q4

REPORT INFORMATION
  Report Type: Spontaneous
  Country: FR (occurrence: FR)
  Receive Date: 20221220
  Receipt Date: 20221220
  Transmission Date: 20230113
  Serious: Yes (Hospitalization, Other)
  Sender: FDA-Public Use
  Company Number: FR-PFIZER INC-PV202200042462

PATIENT
  Age: 95 Year
  Sex: Female

DRUGS (13)
  1. BENDAMUSTINE [Suspect]
     Active Substance: BENDAMUSTINE
     Indication: Lymphoplasmacytoid lymphoma/immunocytoma
     Dosage: 50 MG/M2 (THIRD-LINE THERAPY ON D1 AND D2)
     Route: 042
     Dates: start: 20210819, end: 20211014
  2. BENDAMUSTINE [Suspect]
     Active Substance: BENDAMUSTINE
     Indication: Primary amyloidosis
  3. BORTEZOMIB [Suspect]
     Active Substance: BORTEZOMIB
     Indication: Primary amyloidosis
     Dosage: 1 MG/M2 (D1 D8 D15 D22
     Route: 058
     Dates: start: 20210303, end: 20210722
  4. BORTEZOMIB [Suspect]
     Active Substance: BORTEZOMIB
     Dosage: 500 MG/M2 MONTHLY
  5. CYCLOPHOSPHAMIDE [Suspect]
     Active Substance: CYCLOPHOSPHAMIDE
     Indication: Primary amyloidosis
     Dosage: 100 MG (D1 D8 D15)
     Route: 048
     Dates: start: 20210303, end: 20210722
  6. DEXAMETHASONE [Suspect]
     Active Substance: DEXAMETHASONE
     Indication: Primary amyloidosis
     Dosage: 10 MG (D1 D8 D15 D22)
     Route: 048
     Dates: start: 20211112
  7. DEXAMETHASONE [Suspect]
     Active Substance: DEXAMETHASONE
     Route: 048
     Dates: start: 20210303, end: 20210722
  8. RITUXIMAB [Suspect]
     Active Substance: RITUXIMAB
     Indication: Lymphoplasmacytoid lymphoma/immunocytoma
     Dosage: 500 MG/M2, QMO
     Route: 042
     Dates: start: 20210819, end: 20211014
  9. RITUXIMAB [Suspect]
     Active Substance: RITUXIMAB
     Indication: Primary amyloidosis
     Route: 042
     Dates: start: 20201209, end: 20210204
  10. RITUXIMAB [Suspect]
     Active Substance: RITUXIMAB
     Dosage: THIRD-LINE THERAPY ON D1
     Route: 042
  11. WARFARIN [Concomitant]
     Active Substance: WARFARIN
     Indication: Product used for unknown indication
  12. COTRIMOXAZOLE [Concomitant]
     Active Substance: SULFAMETHOXAZOLE\TRIMETHOPRIM
     Indication: Product used for unknown indication
  13. VALACYCLOVIR HYDROCHLORIDE [Concomitant]
     Active Substance: VALACYCLOVIR HYDROCHLORIDE
     Indication: Product used for unknown indication

REACTIONS (9)
  - Acute pulmonary oedema [Unknown]
  - Erysipelas [Unknown]
  - Acute kidney injury [Unknown]
  - Neutropenia [Unknown]
  - Atrial fibrillation [Unknown]
  - Cardiac failure [Unknown]
  - Gout [Unknown]
  - Product use in unapproved indication [Unknown]
  - Drug ineffective [Unknown]
